FAERS Safety Report 22826788 (Version 2)
Quarter: 2023Q4

REPORT INFORMATION
  Report Type: Spontaneous
  Country: BR (occurrence: BR)
  Receive Date: 20230816
  Receipt Date: 20231027
  Transmission Date: 20240110
  Serious: Yes (Other)
  Sender: FDA-Public Use
  Company Number: BR-Accord-372411

PATIENT
  Age: 53 Year
  Sex: Female
  Weight: 76.3 kg

DRUGS (2)
  1. PACLITAXEL [Suspect]
     Active Substance: PACLITAXEL
     Indication: Breast cancer
     Dosage: INTRAVENOUS, 23. 7 ML
     Route: 042
     Dates: start: 2023
  2. PACLITAXEL [Suspect]
     Active Substance: PACLITAXEL
     Indication: Breast cancer
     Dosage: INTRAVENOUS, 23. 7 ML
     Route: 042
     Dates: start: 20230914

REACTIONS (5)
  - Asphyxia [Recovered/Resolved]
  - Malaise [Unknown]
  - Dizziness [Unknown]
  - Abdominal pain upper [Unknown]
  - Abdominal pain [Unknown]

NARRATIVE: CASE EVENT DATE: 20230101
